FAERS Safety Report 17392336 (Version 1)
Quarter: 2020Q1

REPORT INFORMATION
  Report Type: Spontaneous
  Country: US (occurrence: US)
  Receive Date: 20200207
  Receipt Date: 20200207
  Transmission Date: 20200409
  Serious: Yes (Other)
  Sender: FDA-Public Use
  Company Number: US-DSJP-DSU-2020-104270

PATIENT

DRUGS (1)
  1. WELCHOL [Suspect]
     Active Substance: COLESEVELAM HYDROCHLORIDE
     Indication: PRODUCT USED FOR UNKNOWN INDICATION
     Dosage: 625 MG, QD, 4 TABLETS
     Route: 048

REACTIONS (4)
  - Dysphagia [Unknown]
  - Dementia [Not Recovered/Not Resolved]
  - Off label use [Unknown]
  - Dementia Alzheimer^s type [Not Recovered/Not Resolved]
